FAERS Safety Report 23706179 (Version 5)
Quarter: 2025Q3

REPORT INFORMATION
  Report Type: Report from Study
  Country: US (occurrence: US)
  Receive Date: 20240404
  Receipt Date: 20250729
  Transmission Date: 20251020
  Serious: Yes (Other)
  Sender: BRISTOL-MYERS SQUIBB COMPANY
  Company Number: US-BRISTOL-MYERS SQUIBB COMPANY-2024-050033

PATIENT
  Age: 76 Year
  Sex: Male
  Weight: 70.31 kg

DRUGS (5)
  1. OPDUALAG [Suspect]
     Active Substance: NIVOLUMAB\RELATLIMAB-RMBW
     Indication: Malignant melanoma
     Dosage: DOSE : 160;     FREQ : EVERY 4 WEEK
     Route: 042
     Dates: start: 202208
  2. OPDUALAG [Suspect]
     Active Substance: NIVOLUMAB\RELATLIMAB-RMBW
     Route: 042
     Dates: start: 202402, end: 20240613
  3. NAPROXEN [Suspect]
     Active Substance: NAPROXEN
     Indication: Pain
  4. AMLODIPINE BESYLATE\BENAZEPRIL HYDROCHLORIDE [Concomitant]
     Active Substance: AMLODIPINE BESYLATE\BENAZEPRIL HYDROCHLORIDE
     Indication: Product used for unknown indication
  5. VITAMINS [Concomitant]
     Active Substance: VITAMINS
     Indication: Product used for unknown indication

REACTIONS (24)
  - Dermatitis acneiform [Recovering/Resolving]
  - Fatigue [Unknown]
  - Product availability issue [Unknown]
  - Therapy interrupted [Unknown]
  - Basal cell carcinoma [Unknown]
  - COVID-19 [Unknown]
  - Ascariasis [Unknown]
  - Rash [Not Recovered/Not Resolved]
  - Pruritus [Unknown]
  - Intentional product misuse [Unknown]
  - Gait disturbance [Unknown]
  - Actinic keratosis [Not Recovered/Not Resolved]
  - Headache [Unknown]
  - Abdominal pain upper [Unknown]
  - Abdominal distension [Unknown]
  - Weight increased [Unknown]
  - Eye pain [Unknown]
  - Dysphonia [Unknown]
  - Nausea [Unknown]
  - Hyperchlorhydria [Unknown]
  - Dyspepsia [Unknown]
  - Insurance issue [Unknown]
  - Gastrooesophageal reflux disease [Unknown]
  - Metastatic malignant melanoma [Unknown]

NARRATIVE: CASE EVENT DATE: 20240101
